FAERS Safety Report 21071779 (Version 1)
Quarter: 2022Q3

REPORT INFORMATION
  Report Type: Spontaneous
  Country: US (occurrence: US)
  Receive Date: 20220712
  Receipt Date: 20220712
  Transmission Date: 20221026
  Serious: No
  Sender: FDA-Public Use
  Company Number: US-TEVA-2022-US-2051002

PATIENT

DRUGS (1)
  1. ADDERALL [Suspect]
     Active Substance: AMPHETAMINE ASPARTATE\AMPHETAMINE SULFATE\DEXTROAMPHETAMINE SACCHARATE\DEXTROAMPHETAMINE SULFATE
     Indication: Attention deficit hyperactivity disorder
     Dosage: CAPSULES - EXTENDED / SUSTAINED RELEASE
     Route: 065
     Dates: start: 202206

REACTIONS (5)
  - Drug ineffective [Unknown]
  - Irritability [Unknown]
  - Anxiety [Unknown]
  - Anger [Unknown]
  - Depression [Unknown]

NARRATIVE: CASE EVENT DATE: 20220601
